FAERS Safety Report 14590840 (Version 1)
Quarter: 2018Q1

REPORT INFORMATION
  Report Type: Spontaneous
  Country: US (occurrence: US)
  Receive Date: 20180301
  Receipt Date: 20180301
  Transmission Date: 20180509
  Serious: Yes (Life-Threatening, Hospitalization, Disabling, Congenital Anomaly)
  Sender: FDA-Public Use
  Company Number: None

PATIENT
  Age: 72 Year
  Sex: Male
  Weight: 66 kg

DRUGS (2)
  1. GADOBUTROL [Suspect]
     Active Substance: GADOBUTROL
     Indication: ANGIOGRAM
     Route: 042
     Dates: start: 20180102, end: 20180102
  2. GADOBUTROL [Suspect]
     Active Substance: GADOBUTROL
     Indication: NUCLEAR MAGNETIC RESONANCE IMAGING HEART
     Route: 042
     Dates: start: 20180102, end: 20180102

REACTIONS (10)
  - Respiratory depression [None]
  - Urticaria [None]
  - Hypotension [None]
  - Pruritus generalised [None]
  - Oxygen saturation decreased [None]
  - Pulseless electrical activity [None]
  - Anaphylactic reaction [None]
  - Ejection fraction decreased [None]
  - Pulse absent [None]
  - Ventricular hypokinesia [None]

NARRATIVE: CASE EVENT DATE: 20180102
